FAERS Safety Report 25052406 (Version 3)
Quarter: 2025Q2

REPORT INFORMATION
  Report Type: Report from Study
  Country: US (occurrence: US)
  Receive Date: 20250307
  Receipt Date: 20250624
  Transmission Date: 20250717
  Serious: Yes (Other)
  Sender: SUNOVION
  Company Number: US-SUMITOMO PHARMA SWITZERLAND GMBH-2025SPA001614

PATIENT

DRUGS (3)
  1. ORGOVYX [Suspect]
     Active Substance: RELUGOLIX
     Indication: Prostate cancer
     Dosage: 120 MG, QD
     Route: 048
     Dates: start: 20250128
  2. XTANDI [Concomitant]
     Active Substance: ENZALUTAMIDE
     Indication: Product used for unknown indication
     Route: 065
  3. CORTISONE [Concomitant]
     Active Substance: CORTISONE
     Route: 065

REACTIONS (10)
  - Atrioventricular block [Unknown]
  - Emotional disorder [Unknown]
  - Muscular weakness [Unknown]
  - Pulmonary mass [Recovering/Resolving]
  - Bone disorder [Unknown]
  - Feeling of body temperature change [Unknown]
  - Constipation [Unknown]
  - Insomnia [Unknown]
  - Asthenia [Unknown]
  - Incorrect dose administered [Unknown]
